FAERS Safety Report 20083393 (Version 1)
Quarter: 2021Q4

REPORT INFORMATION
  Report Type: Spontaneous
  Country: IT (occurrence: IT)
  Receive Date: 20211117
  Receipt Date: 20211117
  Transmission Date: 20220303
  Serious: Yes (Hospitalization)
  Sender: FDA-Public Use
  Company Number: IT-ABBVIE-21K-083-4163696-00

PATIENT
  Age: 64 Year
  Sex: Female
  Weight: 65 kg

DRUGS (3)
  1. VALPROATE SODIUM [Suspect]
     Active Substance: VALPROATE SODIUM
     Indication: Mental disorder
     Route: 048
     Dates: start: 20150128, end: 20200128
  2. QUETIAPINE FUMARATE [Suspect]
     Active Substance: QUETIAPINE FUMARATE
     Indication: Mental disorder
     Route: 048
     Dates: start: 20200127, end: 20200127
  3. LITHIUM CARBONATE [Suspect]
     Active Substance: LITHIUM CARBONATE
     Indication: Mental disorder
     Route: 048
     Dates: start: 20150127, end: 20200127

REACTIONS (2)
  - Confusional state [Recovering/Resolving]
  - Wrong product administered [Unknown]

NARRATIVE: CASE EVENT DATE: 20200127
